FAERS Safety Report 5414475-2 (Version None)
Quarter: 2007Q3

REPORT INFORMATION
  Report Type: 
  Country: None (occurrence: None)
  Receive Date: 20070713
  Receipt Date: 20070425
  Transmission Date: 20080115
  Serious: No
  Sender: FDA-Public Use
  Company Number: US-JNJFOC-20070103878

PATIENT
  Age: 36 Year
  Sex: Female

DRUGS (2)
  1. ORTHO EVRA [Suspect]
     Indication: CONTRACEPTION
     Dosage: TRANSDERMAL
     Route: 062
     Dates: start: 20020101, end: 20040101
  2. CHANTIX (ALL OTHER THERAPEUTIC PRODUCTS) TABLET [Concomitant]

REACTIONS (2)
  - HOT FLUSH [None]
  - MENSTRUATION IRREGULAR [None]
